FAERS Safety Report 19878304 (Version 3)
Quarter: 2021Q4

REPORT INFORMATION
  Report Type: Report from Study
  Country: US (occurrence: US)
  Receive Date: 20210923
  Receipt Date: 20211215
  Transmission Date: 20220303
  Serious: No
  Sender: FDA-Public Use
  Company Number: US-NOVARTISTESTPH-NVSC2021US215289

PATIENT
  Age: 56 Year
  Sex: Female

DRUGS (1)
  1. KESIMPTA [Suspect]
     Active Substance: OFATUMUMAB
     Indication: Multiple sclerosis
     Dosage: 20 MG, OTHER (ONE INJECTION PER FOR 3 WEEKS, THEN ONE WEEK OF NO MEDICINE, ONE INJECTION PER MONTH)
     Route: 058
     Dates: start: 20210808

REACTIONS (6)
  - Rhinorrhoea [Unknown]
  - Feeling abnormal [Unknown]
  - Muscular weakness [Unknown]
  - Cough [Unknown]
  - Pain [Unknown]
  - Fatigue [Unknown]

NARRATIVE: CASE EVENT DATE: 20210808
